FAERS Safety Report 14375730 (Version 1)
Quarter: 2018Q1

REPORT INFORMATION
  Report Type: Spontaneous
  Country: CA (occurrence: CA)
  Receive Date: 20180110
  Receipt Date: 20180110
  Transmission Date: 20180509
  Serious: No
  Sender: FDA-Public Use
  Company Number: None

PATIENT
  Age: 50 Year
  Sex: Female
  Weight: 54 kg

DRUGS (4)
  1. VALACYCLOVIR [Suspect]
     Active Substance: VALACYCLOVIR HYDROCHLORIDE
     Indication: HERPES VIRUS INFECTION
     Route: 048
     Dates: start: 20171215, end: 20180105
  2. ACYCLOVIR. [Suspect]
     Active Substance: ACYCLOVIR
     Indication: HERPES VIRUS INFECTION
     Dates: start: 20180105, end: 20180107
  3. COLD FX [Concomitant]
     Active Substance: PANAX GINSENG WHOLE
  4. CENTRUM MULTIVITAMIN FOR WOMEN [Concomitant]

REACTIONS (7)
  - Paraesthesia oral [None]
  - Nipple disorder [None]
  - Hypoaesthesia oral [None]
  - Genital paraesthesia [None]
  - Paraesthesia [None]
  - Therapy change [None]
  - Hypoaesthesia [None]

NARRATIVE: CASE EVENT DATE: 20180107
